FAERS Safety Report 15733222 (Version 1)
Quarter: 2018Q4

REPORT INFORMATION
  Report Type: Spontaneous
  Country: GB (occurrence: GB)
  Receive Date: 20181218
  Receipt Date: 20181218
  Transmission Date: 20190205
  Serious: Yes (Hospitalization)
  Sender: FDA-Public Use
  Company Number: GB-DEXPHARM-20180963

PATIENT
  Age: 41 Year
  Sex: Male

DRUGS (10)
  1. COLECALCIFEROL [Concomitant]
     Active Substance: CHOLECALCIFEROL
  2. LANTUS [Concomitant]
     Active Substance: INSULIN GLARGINE
  3. ATORVASTATIN [Concomitant]
     Active Substance: ATORVASTATIN
  4. NORTRIPTYLINE [Concomitant]
     Active Substance: NORTRIPTYLINE
  5. MAGNESIUM ASPARTATE [Concomitant]
     Active Substance: MAGNESIUM ASPARTATE
  6. NOVOMIX [Concomitant]
     Active Substance: INSULIN ASPART
  7. PRUCALOPRIDE [Concomitant]
     Active Substance: PRUCALOPRIDE
  8. OMEPRAZOLE. [Suspect]
     Active Substance: OMEPRAZOLE
     Route: 048
     Dates: end: 20181121
  9. CYCLIZINE [Concomitant]
     Active Substance: CYCLIZINE
  10. CREON [Concomitant]
     Active Substance: PANCRELIPASE AMYLASE\PANCRELIPASE LIPASE\PANCRELIPASE PROTEASE

REACTIONS (1)
  - Hypomagnesaemia [Recovering/Resolving]
